FAERS Safety Report 4898188-1 (Version None)
Quarter: 2006Q1

REPORT INFORMATION
  Report Type: 
  Country: None (occurrence: None)
  Receive Date: 20060127
  Receipt Date: 20060110
  Transmission Date: 20060701
  Serious: Yes (Death, Hospitalization)
  Sender: FDA-Public Use
  Company Number: US200601001478

PATIENT
  Age: 84 Year
  Sex: Female

DRUGS (18)
  1. CYMBALTA [Suspect]
     Indication: DEPRESSION
     Dosage: 60 MG DAILY (1/D)
     Dates: start: 20040901
  2. PROZAC [Suspect]
     Indication: DEPRESSION
     Dosage: SEE IMAGE
     Dates: end: 20020901
  3. PROZAC [Suspect]
     Indication: DEPRESSION
     Dosage: SEE IMAGE
     Dates: start: 20020901, end: 20040101
  4. PROZAC [Suspect]
     Indication: DEPRESSION
     Dosage: SEE IMAGE
     Dates: start: 20020901, end: 20040101
  5. ZYPREXA [Concomitant]
  6. SYNTHROID [Concomitant]
  7. CLARITIN [Concomitant]
  8. VALSARTAN [Concomitant]
  9. COLCHICINE [Concomitant]
  10. PRILOSEC [Concomitant]
  11. COLACE (DOCUSATE SODIUM) [Concomitant]
  12. CATAPRES [Concomitant]
  13. MEMANTINE HCL [Concomitant]
  14. DONEPEZIL HYDROCHLORIDE [Concomitant]
  15. TOPROL-XL [Concomitant]
  16. MACRODANTIN [Concomitant]
  17. VITAMINS NOS [Concomitant]
  18. ACETYLSALICYLIC ACID SRT [Concomitant]

REACTIONS (7)
  - ASPIRATION [None]
  - BLOOD POTASSIUM DECREASED [None]
  - CARDIAC DISORDER [None]
  - DEHYDRATION [None]
  - HALLUCINATION [None]
  - URINARY TRACT INFECTION [None]
  - VOMITING [None]
